FAERS Safety Report 14512140 (Version 5)
Quarter: 2018Q2

REPORT INFORMATION
  Report Type: Report from Study
  Country: US (occurrence: US)
  Receive Date: 20180209
  Receipt Date: 20180613
  Transmission Date: 20180711
  Serious: Yes (Other)
  Sender: FDA-Public Use
  Company Number: US-PFIZER INC-2018039062

PATIENT
  Age: 90 Year
  Sex: Female

DRUGS (3)
  1. IBRANCE [Suspect]
     Active Substance: PALBOCICLIB
     Indication: BREAST CANCER METASTATIC
     Dosage: 125 MG, ONCE A DAY
     Route: 048
     Dates: start: 20171228, end: 20180314
  2. PROLIA [Concomitant]
     Active Substance: DENOSUMAB
     Indication: OSTEOPOROSIS
     Dosage: UNK, MONTHLY
  3. IBRANCE [Suspect]
     Active Substance: PALBOCICLIB
     Dosage: 125 MG, ONCE A DAY
     Route: 048
     Dates: start: 20180425

REACTIONS (13)
  - Fatigue [Unknown]
  - Full blood count abnormal [Unknown]
  - Energy increased [Recovered/Resolved]
  - Hot flush [Unknown]
  - Skin discolouration [Not Recovered/Not Resolved]
  - Swelling [Recovering/Resolving]
  - Renal impairment [Unknown]
  - Leukopenia [Unknown]
  - Wheezing [Recovered/Resolved]
  - Therapeutic response unexpected [Recovered/Resolved]
  - Flatulence [Recovered/Resolved]
  - Stasis dermatitis [Recovering/Resolving]
  - Cellulitis [Recovering/Resolving]

NARRATIVE: CASE EVENT DATE: 2018
